FAERS Safety Report 4351367-4 (Version None)
Quarter: 2004Q2

REPORT INFORMATION
  Report Type: 
  Country: None (occurrence: None)
  Receive Date: 20040503
  Receipt Date: 20031001
  Transmission Date: 20050107
  Serious: Yes (Hospitalization)
  Sender: FDA-Public Use
  Company Number: PHBS2003JP10754

PATIENT
  Age: 12 Year
  Sex: Male
  Weight: 45 kg

DRUGS (3)
  1. SELBEX [Concomitant]
     Indication: PROPHYLAXIS AGAINST GASTROINTESTINAL ULCER
     Dosage: 50 MG, TID
     Route: 048
     Dates: start: 20030121, end: 20030123
  2. VOLTAREN [Suspect]
     Indication: ANTIPYRESIS
     Dosage: 75 MG/DAY
     Route: 048
     Dates: start: 20030121, end: 20030123
  3. CRAVIT [Suspect]
     Indication: ANTIBACTERIAL PROPHYLAXIS
     Dosage: 100 MG, TID
     Route: 048
     Dates: start: 20030121, end: 20030123

REACTIONS (11)
  - ALANINE AMINOTRANSFERASE INCREASED [None]
  - ASPARTATE AMINOTRANSFERASE INCREASED [None]
  - BLEEDING TIME PROLONGED [None]
  - BLOOD LACTATE DEHYDROGENASE INCREASED [None]
  - HEPATIC FUNCTION ABNORMAL [None]
  - HISTIOCYTOSIS HAEMATOPHAGIC [None]
  - LIVER PALPABLE SUBCOSTAL [None]
  - LYMPHOCYTE STIMULATION TEST POSITIVE [None]
  - PLATELET COUNT DECREASED [None]
  - PYREXIA [None]
  - WHITE BLOOD CELL COUNT DECREASED [None]
